FAERS Safety Report 11742627 (Version 1)
Quarter: 2015Q4

REPORT INFORMATION
  Report Type: Spontaneous
  Country: US (occurrence: US)
  Receive Date: 20151116
  Receipt Date: 20151116
  Transmission Date: 20160304
  Serious: No
  Sender: FDA-Public Use
  Company Number: US-TEVA-609531USA

PATIENT
  Sex: Female
  Weight: 63.11 kg

DRUGS (1)
  1. QNASL [Suspect]
     Active Substance: BECLOMETHASONE DIPROPIONATE
     Indication: COUGH
     Dates: start: 20151105

REACTIONS (2)
  - Burning sensation [Not Recovered/Not Resolved]
  - Intentional product use issue [Not Recovered/Not Resolved]
